FAERS Safety Report 5917125-1 (Version None)
Quarter: 2008Q4

REPORT INFORMATION
  Report Type: 
  Country: None (occurrence: None)
  Receive Date: 20081014
  Receipt Date: 20080930
  Transmission Date: 20090506
  Serious: Yes (Other)
  Sender: FDA-Public Use
  Company Number: GR-ELI_LILLY_AND_COMPANY-GR200809006619

PATIENT
  Age: 74 Year
  Sex: Female

DRUGS (6)
  1. FORTEO [Suspect]
     Indication: OSTEOPOROSIS
     Dosage: 20 UG, DAILY (1/D)
     Route: 058
     Dates: start: 20080925, end: 20080927
  2. PREDNISOLONE [Concomitant]
     Indication: SCLERODERMA
     Dosage: 16 MG, DAILY (1/D)
     Route: 048
  3. METHOTREXATE [Concomitant]
     Indication: SCLERODERMA
     Dosage: 5 MG, WEEKLY (1/W)
     Route: 048
  4. FILICINE [Concomitant]
     Indication: SCLERODERMA
     Dosage: 5 MG, DAILY (1/D)
     Route: 048
  5. ADALAT [Concomitant]
     Indication: HYPERTENSION
     Dosage: 20 MG, DAILY (1/D)
     Route: 048
  6. CALCIORAL [Concomitant]
     Indication: OSTEOPOROSIS
     Dosage: 5 MG, DAILY (1/D)
     Route: 048

REACTIONS (3)
  - AMNESIA [None]
  - BLOOD CALCIUM DECREASED [None]
  - BLOOD GLUCOSE DECREASED [None]
